FAERS Safety Report 12116126 (Version 2)
Quarter: 2016Q2

REPORT INFORMATION
  Report Type: Spontaneous
  Country: US (occurrence: US)
  Receive Date: 20160225
  Receipt Date: 20160512
  Transmission Date: 20160815
  Serious: No
  Sender: FDA-Public Use
  Company Number: US-ACTAVIS-2015-15589

PATIENT
  Sex: Female
  Weight: 72.7 kg

DRUGS (1)
  1. MICONAZOLE NITRATE-MICONAZOLE (AMALLC) [Suspect]
     Active Substance: MICONAZOLE NITRATE
     Indication: PRODUCT USED FOR UNKNOWN INDICATION
     Dosage: UNKNOWN
     Route: 065

REACTIONS (2)
  - Expired product administered [Recovered/Resolved]
  - Drug ineffective [Recovered/Resolved]
